FAERS Safety Report 17970749 (Version 1)
Quarter: 2020Q3

REPORT INFORMATION
  Report Type: Spontaneous
  Country: GB (occurrence: GB)
  Receive Date: 20200701
  Receipt Date: 20200701
  Transmission Date: 20201103
  Serious: Yes (Hospitalization, Other)
  Sender: FDA-Public Use
  Company Number: GB-BAYER-2020-127520

PATIENT
  Age: 45 Year
  Sex: Female
  Weight: 74.38 kg

DRUGS (2)
  1. AMITRIPTYLINE HYDROCHLORIDE. [Concomitant]
     Active Substance: AMITRIPTYLINE HYDROCHLORIDE
  2. MIRENA [Suspect]
     Active Substance: LEVONORGESTREL
     Indication: MENORRHAGIA
     Dosage: 20 ?G PER DAY CONTINUOUSLY
     Route: 015
     Dates: start: 20190405, end: 20200526

REACTIONS (6)
  - Cardiac flutter [Not Recovered/Not Resolved]
  - Withdrawal bleed [Unknown]
  - Thrombosis [Unknown]
  - Palpitations [Not Recovered/Not Resolved]
  - Extrasystoles [Unknown]
  - Dyspnoea [Not Recovered/Not Resolved]

NARRATIVE: CASE EVENT DATE: 20200310
